FAERS Safety Report 15047715 (Version 2)
Quarter: 2018Q3

REPORT INFORMATION
  Report Type: Spontaneous
  Country: IE (occurrence: IE)
  Receive Date: 20180621
  Receipt Date: 20180713
  Transmission Date: 20181010
  Serious: Yes (Disabling)
  Sender: FDA-Public Use
  Company Number: IE-TEVA-2018-IE-910221

PATIENT
  Age: 17 Year
  Sex: Female
  Weight: 60 kg

DRUGS (3)
  1. MONTELUKAST SODIUM(G) [Suspect]
     Active Substance: MONTELUKAST SODIUM
     Indication: DYSPNOEA
  2. MONTELUKAST SODIUM(G) [Suspect]
     Active Substance: MONTELUKAST SODIUM
     Indication: LUNG DISORDER
     Route: 048
     Dates: start: 20170306, end: 20180517
  3. MONTELUKAST SODIUM(G) [Suspect]
     Active Substance: MONTELUKAST SODIUM
     Indication: PLEURISY

REACTIONS (8)
  - Agitation [Recovered/Resolved]
  - Depressed mood [Recovered/Resolved]
  - Fatigue [Recovered/Resolved]
  - Psychomotor hyperactivity [Recovered/Resolved]
  - Disturbance in attention [Recovered/Resolved]
  - Nightmare [Recovered/Resolved]
  - Insomnia [Recovered/Resolved]
  - Restlessness [Recovered/Resolved]

NARRATIVE: CASE EVENT DATE: 20170119
